FAERS Safety Report 20623162 (Version 1)
Quarter: 2022Q1

REPORT INFORMATION
  Report Type: Spontaneous
  Country: US (occurrence: None)
  Receive Date: 20220322
  Receipt Date: 20220322
  Transmission Date: 20220424
  Serious: Yes (Life-Threatening)
  Sender: FDA-Public Use
  Company Number: None

PATIENT

DRUGS (1)
  1. ARICEPT [Suspect]
     Active Substance: DONEPEZIL HYDROCHLORIDE

REACTIONS (11)
  - Illness [None]
  - Suicidal ideation [None]
  - Decreased appetite [None]
  - Confusional state [None]
  - Feeling abnormal [None]
  - Anxiety [None]
  - Nausea [None]
  - Headache [None]
  - Muscle spasms [None]
  - Nightmare [None]
  - Hallucination [None]

NARRATIVE: CASE EVENT DATE: 20210809
